FAERS Safety Report 5234761-9 (Version None)
Quarter: 2007Q1

REPORT INFORMATION
  Report Type: 
  Country: None (occurrence: None)
  Receive Date: 20070209
  Receipt Date: 20070131
  Transmission Date: 20070707
  Serious: Yes (Disabling, Other)
  Sender: FDA-Public Use
  Company Number: JP-ELI_LILLY_AND_COMPANY-JP200610005002

PATIENT
  Age: 66 Year
  Sex: Male
  Weight: 49 kg

DRUGS (1)
  1. GEMZAR [Suspect]
     Indication: BILE DUCT CANCER
     Dosage: 1100 MG, OTHER
     Route: 042
     Dates: start: 20060509, end: 20060801

REACTIONS (3)
  - GLOMERULONEPHRITIS CHRONIC [None]
  - PLATELET COUNT DECREASED [None]
  - RENAL IMPAIRMENT [None]
